FAERS Safety Report 9118251 (Version 1)
Quarter: 2013Q1

REPORT INFORMATION
  Report Type: Report from Study
  Country: US (occurrence: US)
  Receive Date: 20130129
  Receipt Date: 20130129
  Transmission Date: 20140127
  Serious: No
  Sender: FDA-Public Use
  Company Number: US-ABBOTT-12P-163-0940360-00

PATIENT
  Age: 52 Year
  Sex: Female

DRUGS (6)
  1. HUMIRA 40 MG/0.8 ML PEN [Suspect]
     Indication: PSORIATIC ARTHROPATHY
     Dates: start: 201205
  2. ZOLOFT [Concomitant]
     Indication: DEPRESSION
     Dosage: 100MG DAILY
  3. BYSTOLIC [Concomitant]
     Indication: TACHYCARDIA
     Dosage: 1/3 OF 5MG TABLET DAILY
  4. FOLIC ACID [Concomitant]
     Indication: VITAMIN SUPPLEMENTATION
     Dosage: 1MG DAILY
  5. TYLENOL PM [Concomitant]
     Indication: INSOMNIA
  6. XANAX [Concomitant]
     Indication: ANXIETY
     Dosage: 0.5 OF 1MG TABLET AS NEEDED

REACTIONS (5)
  - Malaise [Not Recovered/Not Resolved]
  - Injection site erythema [Not Recovered/Not Resolved]
  - Rash [Not Recovered/Not Resolved]
  - Injection site erythema [Not Recovered/Not Resolved]
  - Pain in extremity [Not Recovered/Not Resolved]
